FAERS Safety Report 6789203-9 (Version None)
Quarter: 2010Q2

REPORT INFORMATION
  Report Type: 
  Country: None (occurrence: None)
  Receive Date: 20100623
  Receipt Date: 20080909
  Transmission Date: 20101027
  Serious: No
  Sender: FDA-Public Use
  Company Number: US-PFIZER INC-2008055331

PATIENT
  Sex: Female
  Weight: 63.636 kg

DRUGS (5)
  1. XALATAN [Suspect]
     Indication: INTRAOCULAR PRESSURE INCREASED
     Dosage: HS: EVERYDAY
     Route: 047
     Dates: start: 20050101
  2. XALATAN [Suspect]
     Indication: GLAUCOMA
  3. ANTIGLAUCOMA PREPARATIONS AND MIOTICS [Suspect]
     Indication: GLAUCOMA
  4. TOPROL-XL [Concomitant]
  5. ACETYLSALICYLIC ACID [Concomitant]

REACTIONS (5)
  - DRY EYE [None]
  - EYE IRRITATION [None]
  - EYE PAIN [None]
  - MYALGIA [None]
  - OCULAR HYPERAEMIA [None]
